FAERS Safety Report 12704440 (Version 1)
Quarter: 2016Q3

REPORT INFORMATION
  Report Type: Spontaneous
  Country: US (occurrence: US)
  Receive Date: 20160831
  Receipt Date: 20160831
  Transmission Date: 20161109
  Serious: No
  Sender: FDA-Public Use
  Company Number: US-BAYER-2016-169068

PATIENT
  Age: 76 Year
  Sex: Male

DRUGS (2)
  1. ALEVE [Suspect]
     Active Substance: NAPROXEN SODIUM
     Indication: PAIN
     Dosage: UNK UNK, Q8HR
  2. ALEVE [Suspect]
     Active Substance: NAPROXEN SODIUM
     Indication: PAIN
     Dosage: 1 DF, UNK
     Route: 048
     Dates: start: 2016, end: 20160830

REACTIONS (5)
  - Varicella [Not Recovered/Not Resolved]
  - Skin mass [Not Recovered/Not Resolved]
  - Urticaria [Not Recovered/Not Resolved]
  - Expired product administered [None]
  - Incorrect drug administration duration [None]

NARRATIVE: CASE EVENT DATE: 2016
